FAERS Safety Report 7500649-3 (Version None)
Quarter: 2011Q2

REPORT INFORMATION
  Report Type: 
  Country: None (occurrence: None)
  Receive Date: 20110517
  Receipt Date: 20110504
  Transmission Date: 20111010
  Serious: Yes (Hospitalization, Other)
  Sender: FDA-Public Use
  Company Number: IE-005320

PATIENT
  Sex: Female

DRUGS (3)
  1. OVITRELLE (OVITRELLE) 250 ?G (NOT SPECIFIED) [Suspect]
     Indication: PRODUCT USED FOR UNKNOWN INDICATION
     Dosage: (250 ?G SUBCUTANEOUS)
     Route: 058
     Dates: start: 20110326
  2. MENOPUR [Suspect]
     Indication: INFERTILITY FEMALE
     Dosage: (75 IU SUBCUTANEOUS), (150 IU SUBCUTANEOUS)
     Route: 058
     Dates: start: 20110325, end: 20110328
  3. MENOPUR [Suspect]
     Indication: INFERTILITY FEMALE
     Dosage: (75 IU SUBCUTANEOUS), (150 IU SUBCUTANEOUS)
     Route: 058
     Dates: start: 20110314, end: 20110324

REACTIONS (6)
  - NAUSEA [None]
  - OVARIAN HYPERSTIMULATION SYNDROME [None]
  - ABDOMINAL DISTENSION [None]
  - ABDOMINAL PAIN [None]
  - CONSTIPATION [None]
  - DYSPNOEA EXERTIONAL [None]
